FAERS Safety Report 7217194-5 (Version None)
Quarter: 2011Q1

REPORT INFORMATION
  Report Type: 
  Country: None (occurrence: None)
  Receive Date: 20110110
  Receipt Date: 20110103
  Transmission Date: 20110831
  Serious: Yes (Other)
  Sender: FDA-Public Use
  Company Number: US-JNJFOC-20110100853

PATIENT
  Age: 78 Year
  Sex: Female
  Weight: 70.31 kg

DRUGS (1)
  1. FAST ACTING MYLANTA ORIGINAL [Suspect]
     Indication: DYSPEPSIA
     Dosage: 1-2 TIMES PER DAY
     Route: 048

REACTIONS (3)
  - PRODUCT QUALITY ISSUE [None]
  - INTENTIONAL DRUG MISUSE [None]
  - RENAL INJURY [None]
